FAERS Safety Report 7433545-0 (Version None)
Quarter: 2011Q2

REPORT INFORMATION
  Report Type: 
  Country: None (occurrence: None)
  Receive Date: 20110422
  Receipt Date: 20110228
  Transmission Date: 20111010
  Serious: Yes (Other)
  Sender: FDA-Public Use
  Company Number: PHHY2010AU55642

PATIENT
  Sex: Female

DRUGS (2)
  1. EXFORGE [Suspect]
     Dosage: UNK
     Dates: start: 20100901
  2. EXFORGE [Suspect]
     Dosage: ONCE A DAILY
     Dates: start: 20100811

REACTIONS (4)
  - RHINITIS [None]
  - COUGH [None]
  - ASTHMA [None]
  - THROAT TIGHTNESS [None]
